FAERS Safety Report 6039174-8 (Version None)
Quarter: 2009Q1

REPORT INFORMATION
  Report Type: 
  Country: None (occurrence: None)
  Receive Date: 20090115
  Receipt Date: 20090114
  Transmission Date: 20090719
  Serious: Yes (Life-Threatening, Hospitalization)
  Sender: FDA-Public Use
  Company Number: HQWYE086424MAY04

PATIENT
  Age: 68 Year
  Sex: Female
  Weight: 66 kg

DRUGS (4)
  1. GEMTUZUMAB OZOGAMICIN [Suspect]
     Indication: ACUTE MYELOID LEUKAEMIA
     Route: 042
     Dates: start: 20040105, end: 20040105
  2. ETOPOSIDE [Suspect]
     Indication: ACUTE MYELOID LEUKAEMIA
     Dosage: CUMULATIVE DOSE, 1050
     Route: 065
     Dates: start: 20031112, end: 20040108
  3. ARA-C [Suspect]
     Indication: ACUTE MYELOID LEUKAEMIA
     Dosage: CUMULATIVE DOSE, 2100
     Route: 065
     Dates: start: 20031112, end: 20040110
  4. IDARUBICIN HCL [Suspect]
     Indication: ACUTE MYELOID LEUKAEMIA
     Dosage: CUMULATIVE DOSE GIVEN, 42
     Route: 065
     Dates: start: 20040106, end: 20040110

REACTIONS (4)
  - HEPATITIS [None]
  - PNEUMONIA [None]
  - STAPHYLOCOCCAL SEPSIS [None]
  - STOMATITIS [None]
